FAERS Safety Report 26149784 (Version 1)
Quarter: 2025Q4

REPORT INFORMATION
  Report Type: Spontaneous
  Country: US (occurrence: None)
  Receive Date: 20251212
  Receipt Date: 20251212
  Transmission Date: 20260118
  Serious: No
  Sender: FDA-CTU
  Company Number: None

PATIENT
  Age: 50 Year
  Sex: Male
  Weight: 99.8 kg

DRUGS (1)
  1. TECHNETIUM TC-99M PENTETATE CALCIUM TRISODIUM [Suspect]
     Active Substance: TECHNETIUM TC-99M PENTETATE CALCIUM TRISODIUM
     Dosage: OTHER QUANTITY : 1008 MCI;
     Dates: end: 20251205

REACTIONS (1)
  - Haematoma [None]

NARRATIVE: CASE EVENT DATE: 20251205
